FAERS Safety Report 24908975 (Version 1)
Quarter: 2025Q1

REPORT INFORMATION
  Report Type: Report from Study
  Country: CA (occurrence: CA)
  Receive Date: 20250131
  Receipt Date: 20250131
  Transmission Date: 20250409
  Serious: Yes (Hospitalization)
  Sender: TAKEDA
  Company Number: CA-TAKEDA-2023TUS111394

PATIENT
  Age: 85 Year
  Sex: Female

DRUGS (16)
  1. HUMAN IMMUNOGLOBULIN G [Suspect]
     Active Substance: HUMAN IMMUNOGLOBULIN G
     Indication: Secondary immunodeficiency
     Dosage: 6 GRAM, 1/WEEK
     Dates: start: 20231106
  2. HUMAN IMMUNOGLOBULIN G [Suspect]
     Active Substance: HUMAN IMMUNOGLOBULIN G
     Dosage: 6 GRAM, 1/WEEK
  3. HUMAN IMMUNOGLOBULIN G [Suspect]
     Active Substance: HUMAN IMMUNOGLOBULIN G
     Dosage: 6 GRAM, 1/WEEK
  4. HUMAN IMMUNOGLOBULIN G [Suspect]
     Active Substance: HUMAN IMMUNOGLOBULIN G
     Dosage: 6 GRAM, 1/WEEK
  5. LENALIDOMIDE [Concomitant]
     Active Substance: LENALIDOMIDE
  6. DEXAMETHASONE [Concomitant]
     Active Substance: DEXAMETHASONE
  7. DAPSONE [Concomitant]
     Active Substance: DAPSONE
  8. FUROSEMIDE [Concomitant]
     Active Substance: FUROSEMIDE
  9. RIVAROXABAN [Concomitant]
     Active Substance: RIVAROXABAN
  10. PANTOPRAZOLE SODIUM [Concomitant]
     Active Substance: PANTOPRAZOLE SODIUM
  11. XARELTO [Concomitant]
     Active Substance: RIVAROXABAN
  12. PANTOPRAZOLE [Concomitant]
     Active Substance: PANTOPRAZOLE
  13. REVLIMID [Concomitant]
     Active Substance: LENALIDOMIDE
  14. CLOTRIMAZOLE [Concomitant]
     Active Substance: CLOTRIMAZOLE
  15. FUCIDIN [Concomitant]
     Active Substance: FUSIDATE SODIUM
  16. RISEDRONATE SODIUM [Concomitant]
     Active Substance: RISEDRONATE SODIUM

REACTIONS (5)
  - Cardiac disorder [Unknown]
  - Product dose omission issue [Unknown]
  - Abdominal discomfort [Recovered/Resolved]
  - Vomiting [Recovered/Resolved]
  - Nausea [Recovered/Resolved]

NARRATIVE: CASE EVENT DATE: 20231114
